FAERS Safety Report 10239791 (Version 1)
Quarter: 2014Q2

REPORT INFORMATION
  Report Type: Spontaneous
  Country: US (occurrence: None)
  Receive Date: 20140612
  Receipt Date: 20140612
  Transmission Date: 20141212
  Serious: Yes (Other)
  Sender: FDA-Public Use
  Company Number: 2014US003353

PATIENT
  Age: 67 Year
  Sex: Male

DRUGS (1)
  1. ICLUSING [Suspect]
     Indication: CHRONIC MYELOID LEUKAEMIA
     Route: 048

REACTIONS (2)
  - White blood cell count increased [None]
  - Blood urine present [None]
